FAERS Safety Report 9208887 (Version 2)
Quarter: 2013Q2

REPORT INFORMATION
  Report Type: Spontaneous
  Country: JP (occurrence: JP)
  Receive Date: 20130404
  Receipt Date: 20130419
  Transmission Date: 20140414
  Serious: Yes (Other)
  Sender: FDA-Public Use
  Company Number: JP-JNJFOC-20130319085

PATIENT
  Age: 75 Year
  Sex: Male

DRUGS (6)
  1. LISTERINE TOTAL CARE [Suspect]
     Indication: DENTAL DISORDER PROPHYLAXIS
     Dosage: IN THE MORNING AND EVENING
     Route: 048
  2. EUCALYPTOL\MENTHOL\METHYL SALICYLATE\THYMOL [Suspect]
     Indication: DENTAL DISORDER PROPHYLAXIS
     Dosage: IN THE MORNING AND EVENING
     Route: 048
  3. URIEF [Concomitant]
     Indication: DYSURIA
     Dosage: 2 TABLETS OF 4MG.
     Route: 065
  4. LOXONIN [Concomitant]
     Indication: BACK PAIN
     Dosage: 2 TABLETS OF 60MG AS NEEDED.
     Route: 065
  5. LIPITOR [Concomitant]
     Route: 065
  6. GLUCOSAMINE [Concomitant]
     Indication: ROUTINE HEALTH MAINTENANCE
     Route: 065

REACTIONS (5)
  - Hypertension [Recovering/Resolving]
  - Arrhythmia [Unknown]
  - Palpitations [Recovering/Resolving]
  - Dyspnoea [Recovering/Resolving]
  - Fatigue [Unknown]
